FAERS Safety Report 8167837-7 (Version None)
Quarter: 2012Q1

REPORT INFORMATION
  Report Type: 
  Country: None (occurrence: None)
  Receive Date: 20120227
  Receipt Date: 20120215
  Transmission Date: 20120608
  Serious: Yes (Hospitalization)
  Sender: FDA-Public Use
  Company Number: FR-ROCHE-1040856

PATIENT
  Sex: Male
  Weight: 82 kg

DRUGS (2)
  1. AVASTIN [Suspect]
     Indication: GLIOBLASTOMA
     Dosage: LAST DODE PRIOR TO SAE ON 01 FEB 2012
     Route: 042
     Dates: start: 20120201
  2. LOMUSTINE [Suspect]
     Indication: GLIOBLASTOMA
     Dosage: LAST DODE PRIOR TO SAE ON 21 DEC 2011
     Route: 048
     Dates: start: 20111103

REACTIONS (1)
  - APPENDICECTOMY [None]
